FAERS Safety Report 10387672 (Version 1)
Quarter: 2014Q1

REPORT INFORMATION
  Report Type: Spontaneous
  Country: US (occurrence: None)
  Receive Date: 20140306
  Receipt Date: 20140306
  Transmission Date: 20141002
  Serious: Yes (Hospitalization, Other)
  Sender: FDA-Public Use
  Company Number: 163-21880-13071076

PATIENT
  Age: 51 Year
  Sex: Male

DRUGS (2)
  1. REVLIMID (LENALIDOMIDE) (10 MILLIGRAM, CAPSULES) [Suspect]
     Indication: PLASMA CELL MYELOMA
     Dosage: 28 IN 28 D
     Route: 048
     Dates: start: 201212
  2. COMPLETE MULTIVITAMIN (MULTIVITAMINS) [Concomitant]

REACTIONS (2)
  - Renal failure [None]
  - Pneumonia [None]
